FAERS Safety Report 5339213-3 (Version None)
Quarter: 2007Q2

REPORT INFORMATION
  Report Type: 
  Country: None (occurrence: None)
  Receive Date: 20070330
  Receipt Date: 20060908
  Transmission Date: 20071010
  Serious: Yes (Other)
  Sender: FDA-Public Use
  Company Number: 2006UW17755

PATIENT

DRUGS (2)
  1. ZESTRIL [Suspect]
  2. AMBIEN [Suspect]

REACTIONS (2)
  - DRUG DISPENSING ERROR [None]
  - SOMNOLENCE [None]
